FAERS Safety Report 9819162 (Version 1)
Quarter: 2014Q1

REPORT INFORMATION
  Report Type: Spontaneous
  Country: IT (occurrence: FR)
  Receive Date: 20140115
  Receipt Date: 20140115
  Transmission Date: 20141002
  Serious: Yes (Hospitalization)
  Sender: FDA-Public Use
  Company Number: FR-FRI-1000052818

PATIENT
  Age: 80 Year
  Sex: Female

DRUGS (5)
  1. NEBIVOLOL [Suspect]
     Indication: HYPERTENSION
     Route: 048
     Dates: start: 20120924, end: 20121006
  2. CRESTOR [Suspect]
     Indication: HYPERCHOLESTEROLAEMIA
     Route: 048
     Dates: start: 20120924, end: 20121006
  3. PLAVIX [Concomitant]
  4. MEDIATENSYL [Concomitant]
  5. PERINDOPRIL [Concomitant]

REACTIONS (1)
  - Acute generalised exanthematous pustulosis [Recovered/Resolved]
